FAERS Safety Report 8920464 (Version 1)
Quarter: 2012Q4

REPORT INFORMATION
  Report Type: 
  Country: DE (occurrence: DE)
  Receive Date: 20121121
  Receipt Date: 20121121
  Transmission Date: 20130627
  Serious: Yes (Hospitalization)
  Sender: FDA-Public Use
  Company Number: DE-ROCHE-1157901

PATIENT
  Sex: Female

DRUGS (2)
  1. MABTHERA [Suspect]
     Indication: B-CELL LYMPHOMA
     Route: 065
  2. BENDAMUSTINA [Concomitant]
     Indication: B-CELL LYMPHOMA

REACTIONS (2)
  - Visual impairment [Not Recovered/Not Resolved]
  - Leukoencephalopathy [Not Recovered/Not Resolved]
